FAERS Safety Report 19893388 (Version 1)
Quarter: 2021Q3

REPORT INFORMATION
  Report Type: Spontaneous
  Country: US (occurrence: US)
  Receive Date: 20210928
  Receipt Date: 20210928
  Transmission Date: 20211014
  Serious: No
  Sender: FDA-Public Use
  Company Number: US-SA-2021SA316018

PATIENT
  Age: 59 Year
  Sex: Female

DRUGS (2)
  1. SARCLISA [Suspect]
     Active Substance: ISATUXIMAB-IRFC
     Indication: NEOPLASM MALIGNANT
     Dosage: UNK
     Dates: start: 202103
  2. POMALIDOMIDE [Suspect]
     Active Substance: POMALIDOMIDE
     Dosage: UNK

REACTIONS (2)
  - Drug ineffective [Unknown]
  - Therapy interrupted [Unknown]
